FAERS Safety Report 10779545 (Version 3)
Quarter: 2015Q2

REPORT INFORMATION
  Report Type: Spontaneous
  Country: US (occurrence: US)
  Receive Date: 20150210
  Receipt Date: 20150410
  Transmission Date: 20150821
  Serious: No
  Sender: FDA-Public Use
  Company Number: US-JNJFOC-20150107815

PATIENT
  Age: 63 Year
  Sex: Female

DRUGS (3)
  1. FENTANYL TRANSDERMAL SYSTEM [Suspect]
     Active Substance: FENTANYL
     Indication: SPINA BIFIDA
     Route: 062
  2. FENTANYL TRANSDERMAL SYSTEM [Suspect]
     Active Substance: FENTANYL
     Indication: SPINA BIFIDA
     Route: 062
     Dates: start: 2014
  3. ABSTRAL [Suspect]
     Active Substance: FENTANYL CITRATE
     Indication: SPINA BIFIDA
     Route: 062

REACTIONS (4)
  - Drug ineffective [Recovering/Resolving]
  - Therapeutic response decreased [Recovering/Resolving]
  - Wrong technique in drug usage process [Recovered/Resolved]
  - Product quality issue [Recovering/Resolving]

NARRATIVE: CASE EVENT DATE: 2014
